FAERS Safety Report 9476785 (Version 9)
Quarter: 2016Q3

REPORT INFORMATION
  Report Type: Report from Study
  Country: GR (occurrence: GR)
  Receive Date: 20130826
  Receipt Date: 20160726
  Transmission Date: 20161109
  Serious: Yes (Death, Life-Threatening, Hospitalization, Disabling)
  Sender: FDA-Public Use
  Company Number: PHHY2013GR091225

PATIENT
  Age: 59 Year
  Sex: Female
  Weight: 88 kg

DRUGS (3)
  1. CYMBALTA [Concomitant]
     Active Substance: DULOXETINE HYDROCHLORIDE
     Indication: DEPRESSION
     Dosage: 60 MG, QD
     Route: 065
     Dates: start: 20130520, end: 20130804
  2. LEPUR [Concomitant]
     Active Substance: SIMVASTATIN
     Indication: DYSLIPIDAEMIA
     Dosage: 20 MG, QD
     Route: 065
     Dates: start: 20120201, end: 20130803
  3. GILENYA [Suspect]
     Active Substance: FINGOLIMOD HYDROCHLORIDE
     Indication: MULTIPLE SCLEROSIS
     Dosage: 0.5 MG, QD
     Route: 048
     Dates: start: 20130715, end: 20130804

REACTIONS (13)
  - Areflexia [Fatal]
  - Heart rate irregular [Fatal]
  - Electroencephalogram abnormal [Fatal]
  - Pulse absent [Fatal]
  - Haemodynamic instability [Not Recovered/Not Resolved]
  - Multiple organ dysfunction syndrome [Fatal]
  - Peritonitis [Fatal]
  - Brain oedema [Fatal]
  - Drowning [Fatal]
  - Septic shock [Fatal]
  - Near drowning [Fatal]
  - Cardiac disorder [Not Recovered/Not Resolved]
  - Loss of consciousness [Fatal]

NARRATIVE: CASE EVENT DATE: 20130804
